FAERS Safety Report 8009291 (Version 4)
Quarter: 2013Q1

REPORT INFORMATION
  Report Type: Report from Study
  Country: US (occurrence: US)
  Receive Date: 20110624
  Receipt Date: 20130115
  Transmission Date: 20140127
  Serious: Yes (Hospitalization)
  Sender: FDA-Public Use
  Company Number: US-AMGEN-USANI2011031030

PATIENT
  Age: 78 Year
  Sex: Male

DRUGS (2)
  1. ETANERCEPT [Suspect]
     Indication: PSORIASIS
     Dosage: 50 MG, QWK
     Route: 058
     Dates: start: 20070105, end: 20070501
  2. REMICADE [Concomitant]
     Dosage: 600 MG, UNK
     Route: 042
     Dates: start: 20071017, end: 20110422

REACTIONS (1)
  - Adenosquamous cell lung cancer [Recovered/Resolved]
